FAERS Safety Report 4391645-6 (Version None)
Quarter: 2004Q3

REPORT INFORMATION
  Report Type: 
  Country: None (occurrence: None)
  Receive Date: 20040702
  Receipt Date: 20040330
  Transmission Date: 20050211
  Serious: Yes (Other)
  Sender: FDA-Public Use
  Company Number: 2004UW06306

PATIENT
  Age: 72 Year
  Sex: Female
  Weight: 55.7924 kg

DRUGS (8)
  1. CRESTOR [Suspect]
     Indication: BLOOD CHOLESTEROL INCREASED
     Dosage: 10 MG PO
     Route: 048
  2. ASPIRIN [Concomitant]
  3. XANAX [Concomitant]
  4. PRILOSEC [Concomitant]
  5. TRIAMTERENE [Concomitant]
  6. CARAFATE [Concomitant]
  7. DARVOCET-N 100 [Concomitant]
  8. ALAVERT [Concomitant]

REACTIONS (5)
  - CHEST PAIN [None]
  - CONSTIPATION [None]
  - INTESTINAL SPASM [None]
  - MYALGIA [None]
  - NAUSEA [None]
